FAERS Safety Report 7385888-7 (Version None)
Quarter: 2011Q1

REPORT INFORMATION
  Report Type: 
  Country: None (occurrence: None)
  Receive Date: 20110331
  Receipt Date: 20110322
  Transmission Date: 20110831
  Serious: Yes (Death, Hospitalization)
  Sender: FDA-Public Use
  Company Number: BR-US-EMD SERONO, INC.-7049442

PATIENT
  Sex: Female

DRUGS (3)
  1. ENALAPRIL [Concomitant]
  2. REBIF [Suspect]
     Indication: RELAPSING-REMITTING MULTIPLE SCLEROSIS
     Dates: start: 20091120, end: 20110213
  3. FRONTAL [Concomitant]
     Indication: NERVOUSNESS

REACTIONS (3)
  - PERITONEAL NEOPLASM [None]
  - PNEUMONIA [None]
  - PULMONARY SEPSIS [None]
